FAERS Safety Report 23815786 (Version 2)
Quarter: 2024Q3

REPORT INFORMATION
  Report Type: Spontaneous
  Country: JP (occurrence: JP)
  Receive Date: 20240503
  Receipt Date: 20240704
  Transmission Date: 20241016
  Serious: Yes (Death, Other)
  Sender: MERCK
  Company Number: JP-MSD-2404JPN003770J

PATIENT
  Sex: Female

DRUGS (2)
  1. KEYTRUDA [Suspect]
     Active Substance: PEMBROLIZUMAB
     Indication: Uterine cancer
     Dosage: UNK
     Route: 065
     Dates: start: 20230130, end: 20230220
  2. LENVATINIB MESYLATE [Suspect]
     Active Substance: LENVATINIB MESYLATE
     Indication: Uterine cancer
     Dosage: UNK
     Route: 065
     Dates: start: 20230130, end: 20230220

REACTIONS (3)
  - Death [Fatal]
  - Dysphonia [Recovered/Resolved]
  - Malaise [Recovered/Resolved]

NARRATIVE: CASE EVENT DATE: 20230101
